FAERS Safety Report 6998670-7 (Version None)
Quarter: 2010Q3

REPORT INFORMATION
  Report Type: 
  Country: None (occurrence: None)
  Receive Date: 20100920
  Receipt Date: 20100322
  Transmission Date: 20110219
  Serious: No
  Sender: FDA-Public Use
  Company Number: US-ASTRAZENECA-2010SE12518

PATIENT
  Age: 25 Year
  Sex: Female
  Weight: 136.5 kg

DRUGS (8)
  1. SEROQUEL [Suspect]
     Indication: POST-TRAUMATIC STRESS DISORDER
     Dosage: 75 MG DAILY
     Route: 048
  2. SEROQUEL [Suspect]
     Indication: BIPOLAR DISORDER
     Dosage: 75 MG DAILY
     Route: 048
  3. LAMOTRIGINE [Concomitant]
     Indication: BIPOLAR DISORDER
  4. TOPAMAX [Concomitant]
     Indication: BIPOLAR DISORDER
  5. VITAMIN AND MINERAL PRENATAL SUPPLEMENT W/ FOLIC ACID CAP [Concomitant]
     Indication: INGROWN HAIR
  6. VITAMIN AND MINERAL PRENATAL SUPPLEMENT W/ FOLIC ACID CAP [Concomitant]
     Indication: INGROWING NAIL
  7. ECONASIUM [Concomitant]
     Indication: IMMUNE SYSTEM DISORDER
  8. DIETARY HERBS [Concomitant]

REACTIONS (3)
  - MENSTRUATION IRREGULAR [None]
  - NASOPHARYNGITIS [None]
  - SINUSITIS [None]
